FAERS Safety Report 12894766 (Version 1)
Quarter: 2016Q4

REPORT INFORMATION
  Report Type: Spontaneous
  Country: GB (occurrence: GB)
  Receive Date: 20161028
  Receipt Date: 20161028
  Transmission Date: 20170207
  Serious: Yes (Disabling)
  Sender: FDA-Public Use
  Company Number: GB-PFIZER INC-2016351472

PATIENT
  Age: 71 Year
  Sex: Female
  Weight: 66.5 kg

DRUGS (3)
  1. DETRUSITOL [Suspect]
     Active Substance: TOLTERODINE TARTRATE
     Indication: HYPERTONIC BLADDER
     Dosage: 1 MG IN THE MORNING AND EVENING AND 2 MG IN THE MORNING AND EVENING
     Route: 048
     Dates: start: 2002, end: 201603
  2. LANSOPRAZOLE. [Concomitant]
     Active Substance: LANSOPRAZOLE
     Indication: GASTROOESOPHAGEAL REFLUX DISEASE
     Dosage: 30 MG, 1X/DAY (AM)
     Route: 048
     Dates: start: 200202
  3. ALENDRONIC ACID [Concomitant]
     Active Substance: ALENDRONIC ACID
     Indication: OSTEOPOROSIS
     Dosage: 70 MG, WEEKLY
     Route: 048
     Dates: start: 201505, end: 201603

REACTIONS (2)
  - Bladder disorder [Not Recovered/Not Resolved]
  - Urinary retention [Not Recovered/Not Resolved]

NARRATIVE: CASE EVENT DATE: 201508
